FAERS Safety Report 5678057-X (Version None)
Quarter: 2008Q1

REPORT INFORMATION
  Report Type: 
  Country: None (occurrence: None)
  Receive Date: 20080319
  Receipt Date: 20080310
  Transmission Date: 20080703
  Serious: Yes (Life-Threatening, Hospitalization)
  Sender: FDA-Public Use
  Company Number: 23320071798

PATIENT
  Age: 64 Year
  Sex: Male

DRUGS (16)
  1. SOMATULINE AUTOGEL (LANREOTIDE AUTOGEL) (LANREOTIDE ACETATE) [Suspect]
     Indication: ACROMEGALY
     Dosage: 60 MG (4 WEEKLY) SUBCUTANEOUS : 90 MG (4 WEEKLY) SUBCUTANEOUS
     Route: 058
     Dates: start: 20061220, end: 20070117
  2. SOMATULINE AUTOGEL (LANREOTIDE AUTOGEL) (LANREOTIDE ACETATE) [Suspect]
     Indication: ACROMEGALY
     Dosage: 60 MG (4 WEEKLY) SUBCUTANEOUS : 90 MG (4 WEEKLY) SUBCUTANEOUS
     Route: 058
     Dates: start: 20070320, end: 20071101
  3. ISOSORBIDE DINITRATE [Concomitant]
  4. SPIRONOLACTONE [Concomitant]
  5. GTN-S [Concomitant]
  6. RAMIPRIL [Concomitant]
  7. FUROSEMIDE [Concomitant]
  8. ROSUVASTATIN [Concomitant]
  9. METFORMIN HCL [Concomitant]
  10. CARVEDILOL [Concomitant]
  11. OMEPRAZOLE [Concomitant]
  12. ALLOPURINOL [Concomitant]
  13. COLOSAN [Concomitant]
  14. NOVOLOG MIX 70/30 [Concomitant]
  15. DIGOXIN [Concomitant]
  16. WARFARIN SODIUM [Concomitant]

REACTIONS (5)
  - ATRIAL FIBRILLATION [None]
  - CARDIAC FAILURE [None]
  - CONDITION AGGRAVATED [None]
  - UPPER RESPIRATORY TRACT INFECTION [None]
  - VENTRICULAR TACHYCARDIA [None]
